FAERS Safety Report 8934934 (Version 3)
Quarter: 2013Q1

REPORT INFORMATION
  Report Type: Spontaneous
  Country: GB (occurrence: GB)
  Receive Date: 20121129
  Receipt Date: 20130104
  Transmission Date: 20140127
  Serious: Yes (Hospitalization, Other)
  Sender: FDA-Public Use
  Company Number: GB-PFIZER INC-GBWYE044715MAR07

PATIENT
  Age: 8 Year
  Sex: Male

DRUGS (3)
  1. ANADIN EXTRA [Suspect]
     Indication: VIRAEMIA
     Dosage: 200 MG, 3X/DAY
     Route: 048
  2. PARACETAMOL [Concomitant]
     Dosage: 500 MG, 4X/DAY
  3. CEFTRIAXONE [Concomitant]
     Route: 042

REACTIONS (20)
  - Overdose [Unknown]
  - Renal papillary necrosis [Recovered/Resolved]
  - Lung consolidation [Unknown]
  - Somnolence [Unknown]
  - Rash macular [Recovered/Resolved]
  - Abdominal pain [Recovered/Resolved]
  - Anuria [Recovered/Resolved]
  - Back pain [Recovered/Resolved]
  - Pyrexia [Recovered/Resolved]
  - Oedema peripheral [Unknown]
  - Peritonitis [Unknown]
  - Renal disorder [Recovered/Resolved]
  - Blood creatinine increased [Recovered/Resolved]
  - Musculoskeletal stiffness [Unknown]
  - Malaise [Unknown]
  - Ureteral disorder [Recovered/Resolved]
  - Ureteric obstruction [Recovered/Resolved]
  - Urethral haemorrhage [Unknown]
  - Urine output decreased [Recovered/Resolved]
  - Vomiting [Recovered/Resolved]
